FAERS Safety Report 11984477 (Version 1)
Quarter: 2016Q1

REPORT INFORMATION
  Report Type: Spontaneous
  Country: US (occurrence: US)
  Receive Date: 20160201
  Receipt Date: 20160201
  Transmission Date: 20160526
  Serious: Yes (Other)
  Sender: FDA-Public Use
  Company Number: US-KADMON PHARMACEUTICALS, LLC-KAD201503-000507

PATIENT
  Age: 65 Year
  Sex: Female
  Weight: 52.16 kg

DRUGS (2)
  1. RIBASPHERE RIBAPAK [Suspect]
     Active Substance: RIBAVIRIN
     Indication: HEPATITIS C
     Route: 048
     Dates: start: 20150205
  2. SOVALDI [Suspect]
     Active Substance: SOFOSBUVIR

REACTIONS (12)
  - Nausea [Unknown]
  - Fatigue [Recovering/Resolving]
  - Migraine [Unknown]
  - Myalgia [Unknown]
  - Memory impairment [Recovering/Resolving]
  - Anxiety [Recovering/Resolving]
  - Tinnitus [Unknown]
  - Tension [Recovering/Resolving]
  - Confusional state [Recovering/Resolving]
  - Depression [Recovering/Resolving]
  - Pruritus [Unknown]
  - Constipation [Unknown]
